FAERS Safety Report 10196900 (Version 1)
Quarter: 2014Q2

REPORT INFORMATION
  Report Type: Spontaneous
  Country: DE (occurrence: DE)
  Receive Date: 20140527
  Receipt Date: 20140527
  Transmission Date: 20141212
  Serious: Yes (Other)
  Sender: FDA-Public Use
  Company Number: DE-GALDERMA-DE14001900

PATIENT
  Sex: Female

DRUGS (3)
  1. ORACEA [Suspect]
     Route: 048
  2. KEPPRA [Concomitant]
     Indication: EPILEPSY
  3. CORTISONE [Concomitant]
     Indication: EPILEPSY

REACTIONS (1)
  - Epilepsy [Unknown]
